FAERS Safety Report 4262074-0 (Version None)
Quarter: 2004Q1

REPORT INFORMATION
  Report Type: 
  Country: None (occurrence: None)
  Receive Date: 20040102
  Receipt Date: 20031218
  Transmission Date: 20041129
  Serious: Yes (Other)
  Sender: FDA-Public Use
  Company Number: ES-GLAXOSMITHKLINE-B0318185A

PATIENT
  Sex: Female

DRUGS (1)
  1. SEROXAT [Suspect]
     Dosage: 20MG PER DAY
     Dates: end: 20031215

REACTIONS (1)
  - DRUG DEPENDENCE [None]
